FAERS Safety Report 6251251-5 (Version None)
Quarter: 2009Q2

REPORT INFORMATION
  Report Type: 
  Country: None (occurrence: None)
  Receive Date: 20090626
  Receipt Date: 20090615
  Transmission Date: 20091009
  Serious: Yes (Other)
  Sender: FDA-Public Use
  Company Number: SPV1-2009-00618

PATIENT
  Age: 11 Year
  Sex: Male
  Weight: 35 kg

DRUGS (5)
  1. ELAPRASE [Suspect]
     Indication: MUCOPOLYSACCHARIDOSIS II
     Dosage: 18 MG UNK IV DRIP
     Route: 041
     Dates: start: 20050818, end: 20090115
  2. ELAPRASE [Suspect]
     Indication: MUCOPOLYSACCHARIDOSIS II
     Dosage: 18 MG UNK IV DRIP
     Route: 041
     Dates: start: 20090123, end: 20090226
  3. ELAPRASE [Suspect]
     Indication: MUCOPOLYSACCHARIDOSIS II
     Dosage: 18 MG UNK IV DRIP
     Route: 041
     Dates: start: 20090306
  4. HYDROCORTISONE SODIUM SUCCINATE [Concomitant]
  5. HYDROXYZINE HCL [Concomitant]

REACTIONS (8)
  - BLOOD IMMUNOGLOBULIN G INCREASED [None]
  - CHEILITIS [None]
  - COUGH [None]
  - INFUSION RELATED REACTION [None]
  - PRODUCT QUALITY ISSUE [None]
  - PRURITUS [None]
  - SWELLING [None]
  - URTICARIA [None]
